FAERS Safety Report 8533100-5 (Version None)
Quarter: 2012Q3

REPORT INFORMATION
  Report Type: 
  Country: None (occurrence: None)
  Receive Date: 20120712
  Receipt Date: 20120530
  Transmission Date: 20120928
  Serious: Yes (Other)
  Sender: FDA-Public Use
  Company Number: 2012-2153

PATIENT
  Age: 40 Year
  Sex: Female
  Weight: 61.2 kg

DRUGS (4)
  1. SYNTHROID [Concomitant]
  2. UNSPECIFIED VITAMINS(VITAMINS NOS) [Concomitant]
  3. UNSPECIFIED DERMAL FILLER(ALL OTHER THERAPEUTIC PRODUCTS) [Suspect]
     Indication: SKIN COSMETIC PROCEDURE
     Dates: start: 20060101
  4. DYSPORT [Suspect]
     Indication: SKIN WRINKLING
     Dosage: NOT REPORTED (NOT REPORTED,EVERY SIX MONTHS)

REACTIONS (4)
  - HAEMOPHILUS TEST POSITIVE [None]
  - SYNOVIAL CYST [None]
  - HYPERAESTHESIA [None]
  - CORYNEBACTERIUM TEST POSITIVE [None]
